FAERS Safety Report 8278945-4 (Version None)
Quarter: 2012Q2

REPORT INFORMATION
  Report Type: 
  Country: None (occurrence: None)
  Receive Date: 20120412
  Receipt Date: 20120203
  Transmission Date: 20120825
  Serious: No
  Sender: FDA-Public Use
  Company Number: US-ASTRAZENECA-2011SE16311

PATIENT
  Age: 66 Year
  Sex: Female

DRUGS (5)
  1. NEXIUM [Suspect]
     Route: 048
  2. PROAIR HFA [Concomitant]
  3. ZITHROMAX [Concomitant]
  4. DELERIA [Concomitant]
  5. METOPROLOL TARTRATE [Concomitant]

REACTIONS (5)
  - DYSPHONIA [None]
  - RESPIRATORY DISORDER [None]
  - COUGH [None]
  - NASOPHARYNGITIS [None]
  - DRUG DOSE OMISSION [None]
